FAERS Safety Report 5287566-7 (Version None)
Quarter: 2007Q1

REPORT INFORMATION
  Report Type: 
  Country: None (occurrence: None)
  Receive Date: 20070126
  Receipt Date: 20051006
  Transmission Date: 20070707
  Serious: No
  Sender: FDA-Public Use
  Company Number: 2006CT001083

PATIENT
  Age: 19 Year
  Sex: Male
  Weight: 47.2 kg

DRUGS (10)
  1. VENTAVIS [Suspect]
     Indication: EISENMENGER'S SYNDROME
     Dosage: SEE IMAGE
     Route: 055
     Dates: start: 20050923, end: 20051001
  2. VENTAVIS [Suspect]
     Indication: EISENMENGER'S SYNDROME
     Dosage: SEE IMAGE
     Route: 055
     Dates: start: 20051001, end: 20051020
  3. SILDENAFIL CITRATE [Concomitant]
  4. TESTOSTERONE [Concomitant]
  5. LISINORIL [Concomitant]
  6. ACETAMINOPHEN [Concomitant]
  7. FUROSEMIDE [Concomitant]
  8. SPIRONOLACTONE [Concomitant]
  9. FERROUS SULFATE [Concomitant]
  10. WARFARIN [Concomitant]

REACTIONS (6)
  - ASTHENIA [None]
  - BACK PAIN [None]
  - DIZZINESS [None]
  - FATIGUE [None]
  - NAUSEA [None]
  - SYNCOPE [None]
